FAERS Safety Report 13275714 (Version 2)
Quarter: 2019Q3

REPORT INFORMATION
  Report Type: Spontaneous
  Country: US (occurrence: US)
  Receive Date: 20170228
  Receipt Date: 20190705
  Transmission Date: 20191004
  Serious: Yes (Hospitalization, Other)
  Sender: FDA-Public Use
  Company Number: US-BRISTOL-MYERS SQUIBB COMPANY-BMS-2017-014762

PATIENT
  Sex: Male

DRUGS (3)
  1. ELIQUIS [Suspect]
     Active Substance: APIXABAN
     Indication: DEEP VEIN THROMBOSIS
     Dosage: 2.5 MILLIGRAM, BID
     Route: 048
     Dates: start: 201701, end: 2017
  2. ELIQUIS [Suspect]
     Active Substance: APIXABAN
     Indication: PRODUCT USED FOR UNKNOWN INDICATION
     Dosage: 2.5 MILLIGRAM, BID
     Route: 065
     Dates: start: 2019, end: 2019
  3. ELIQUIS [Suspect]
     Active Substance: APIXABAN
     Indication: PRODUCT USED FOR UNKNOWN INDICATION
     Dosage: 5 MILLIGRAM, BID
     Route: 065
     Dates: start: 2019

REACTIONS (9)
  - Macular degeneration [Unknown]
  - Balance disorder [Unknown]
  - Prescribed underdose [Unknown]
  - Fear [Unknown]
  - Gait disturbance [Unknown]
  - Dry throat [Unknown]
  - Haemoptysis [Unknown]
  - Depressed level of consciousness [Unknown]
  - Fatigue [Unknown]

NARRATIVE: CASE EVENT DATE: 2019
